FAERS Safety Report 23795465 (Version 2)
Quarter: 2024Q2

REPORT INFORMATION
  Report Type: Spontaneous
  Country: CN (occurrence: CN)
  Receive Date: 20240429
  Receipt Date: 20240619
  Transmission Date: 20240716
  Serious: Yes (Hospitalization)
  Sender: FDA-Public Use
  Company Number: CN-ELI_LILLY_AND_COMPANY-CN202404008115

PATIENT
  Age: 85 Year
  Sex: Male
  Weight: 67.5 kg

DRUGS (3)
  1. HUMALOG [Suspect]
     Active Substance: INSULIN LISPRO
     Indication: Diabetes mellitus
     Dosage: UNK UNK, BID
     Route: 058
     Dates: start: 2016, end: 2017
  2. HUMULIN 70/30 [Suspect]
     Active Substance: INSULIN HUMAN
     Indication: Diabetes mellitus
     Dosage: 8 INTERNATIONAL UNIT, EACH MORNING
     Route: 058
     Dates: start: 2017
  3. HUMULIN 70/30 [Suspect]
     Active Substance: INSULIN HUMAN
     Dosage: 8 INTERNATIONAL UNIT, EACH EVENING
     Route: 058
     Dates: start: 2017

REACTIONS (2)
  - Cerebral infarction [Unknown]
  - Hypertension [Unknown]
